FAERS Safety Report 21649477 (Version 1)
Quarter: 2022Q4

REPORT INFORMATION
  Report Type: Report from Study
  Country: US (occurrence: US)
  Receive Date: 20221128
  Receipt Date: 20221128
  Transmission Date: 20230113
  Serious: No
  Sender: FDA-Public Use
  Company Number: US-ABBVIE-4178368

PATIENT
  Sex: Female

DRUGS (1)
  1. RINVOQ [Suspect]
     Active Substance: UPADACITINIB
     Indication: Product used for unknown indication
     Dosage: ER?FORM STRENGTH: 15 MILLIGRAM
     Route: 048
     Dates: start: 202204

REACTIONS (3)
  - Periorbital swelling [Unknown]
  - Dry skin [Unknown]
  - Scratch [Unknown]

NARRATIVE: CASE EVENT DATE: 20220101
